FAERS Safety Report 7306140-1 (Version None)
Quarter: 2011Q1

REPORT INFORMATION
  Report Type: 
  Country: None (occurrence: None)
  Receive Date: 20110222
  Receipt Date: 20110216
  Transmission Date: 20110831
  Serious: No
  Sender: FDA-Public Use
  Company Number: US-TEVA-267757USA

PATIENT
  Sex: Female
  Weight: 104.42 kg

DRUGS (7)
  1. VALTREX [Concomitant]
     Indication: NEURALGIA
  2. TRAMADOL HCL [Concomitant]
     Indication: FIBROMYALGIA
  3. FLEXERIL [Concomitant]
     Indication: FIBROMYALGIA
  4. KLONOPIN [Concomitant]
     Indication: RESTLESS LEGS SYNDROME
  5. CYMBALTA [Concomitant]
     Indication: FIBROMYALGIA
  6. PLAN B ONE-STEP [Suspect]
     Indication: POST COITAL CONTRACEPTION
     Route: 048
     Dates: start: 20110207, end: 20110207
  7. TRAZODONE [Concomitant]
     Indication: FIBROMYALGIA

REACTIONS (4)
  - MENSTRUATION IRREGULAR [None]
  - HEADACHE [None]
  - NAUSEA [None]
  - VOMITING [None]
